APPROVED DRUG PRODUCT: DOPAMINE HYDROCHLORIDE
Active Ingredient: DOPAMINE HYDROCHLORIDE
Strength: 40MG/ML
Dosage Form/Route: INJECTABLE;INJECTION
Application: A207707 | Product #001 | TE Code: AP
Applicant: HIKMA INTERNATIONAL PHARMACEUTICALS LLC
Approved: Apr 11, 2018 | RLD: No | RS: No | Type: RX